FAERS Safety Report 6745542-9 (Version None)
Quarter: 2010Q2

REPORT INFORMATION
  Report Type: 
  Country: None (occurrence: None)
  Receive Date: 20100528
  Receipt Date: 20100520
  Transmission Date: 20101027
  Serious: Yes (Hospitalization, Other)
  Sender: FDA-Public Use
  Company Number: DE-JNJFOC-20100301364

PATIENT
  Age: 49 Year
  Sex: Female

DRUGS (9)
  1. TAVANIC [Suspect]
     Indication: INFLAMMATION
     Route: 048
  2. TAVANIC [Suspect]
     Indication: URINARY TRACT INFECTION
     Route: 042
  3. OMEPRAZOLE [Interacting]
     Indication: PROPHYLAXIS AGAINST GASTROINTESTINAL ULCER
     Route: 048
  4. SIMVASTATIN [Interacting]
     Indication: LIPID METABOLISM DISORDER
     Route: 048
  5. BISOPROLOL FUMARATE [Concomitant]
     Indication: HYPERTENSION
     Route: 065
  6. BAYOTENSIN [Concomitant]
     Indication: HYPERTENSION
     Route: 065
  7. LEVOTHYROXINE SODIUM [Concomitant]
     Indication: HYPOTHYROIDISM
     Route: 065
  8. ASPIRIN [Concomitant]
     Route: 065
  9. CYCLOSPORINE [Concomitant]
     Route: 065

REACTIONS (3)
  - DRUG INTERACTION [None]
  - KIDNEY TRANSPLANT REJECTION [None]
  - RHABDOMYOLYSIS [None]
